FAERS Safety Report 7509742-2 (Version None)
Quarter: 2011Q2

REPORT INFORMATION
  Report Type: 
  Country: None (occurrence: None)
  Receive Date: 20110527
  Receipt Date: 20110526
  Transmission Date: 20111010
  Serious: Yes (Death, Hospitalization)
  Sender: FDA-Public Use
  Company Number: US-B.I. PHARMACEUTICALS,INC./RIDGEFIELD-2011-BP-12920BP

PATIENT
  Age: 87 Year
  Sex: Male

DRUGS (5)
  1. PRADAXA [Suspect]
     Indication: ATRIAL FIBRILLATION
     Dates: start: 20110329
  2. ALTACE [Concomitant]
  3. KEPPRA [Concomitant]
  4. ASPIRIN [Concomitant]
  5. INDERAL [Concomitant]

REACTIONS (1)
  - CEREBROVASCULAR ACCIDENT [None]
